FAERS Safety Report 9904008 (Version 1)
Quarter: 2014Q1

REPORT INFORMATION
  Report Type: Spontaneous
  Country: US (occurrence: US)
  Receive Date: 20140218
  Receipt Date: 20140218
  Transmission Date: 20141002
  Serious: No
  Sender: FDA-Public Use
  Company Number: US-BIOGENIDEC-2014BI012209

PATIENT
  Sex: Female

DRUGS (3)
  1. TECFIDERA [Suspect]
     Indication: MULTIPLE SCLEROSIS
     Route: 048
  2. DIPHENHYDRAMINE HCL [Concomitant]
  3. ECOTRIN [Concomitant]

REACTIONS (3)
  - Defaecation urgency [Unknown]
  - Nausea [Unknown]
  - Abdominal pain [Unknown]
